FAERS Safety Report 5581042-X (Version None)
Quarter: 2007Q4

REPORT INFORMATION
  Report Type: 
  Country: None (occurrence: None)
  Receive Date: 20071227
  Receipt Date: 20071219
  Transmission Date: 20080405
  Serious: Yes (Death, Hospitalization, Other)
  Sender: FDA-Public Use
  Company Number: A-US2007-18557

PATIENT
  Age: 51 Year
  Sex: Female
  Weight: 70 kg

DRUGS (5)
  1. VENTAVIS [Suspect]
     Indication: PULMONARY HYPERTENSION
     Dosage: 6 X DAY, RESPIRATORY
     Route: 055
     Dates: start: 20071102, end: 20071104
  2. VENTAVIS [Suspect]
     Indication: PULMONARY HYPERTENSION
     Dosage: 6 X DAY, RESPIRATORY
     Route: 055
     Dates: start: 20071108, end: 20071110
  3. DELTACORTRIL [Concomitant]
  4. SALBUTAMOL SULFATE (SALBUTAMOL SULFATE) [Concomitant]
  5. COMBIVENT [Concomitant]

REACTIONS (7)
  - ECCHYMOSIS [None]
  - HEPATIC FAILURE [None]
  - HYPERHIDROSIS [None]
  - INTERNATIONAL NORMALISED RATIO INCREASED [None]
  - METABOLIC ACIDOSIS [None]
  - PALPITATIONS [None]
  - PETECHIAE [None]
